FAERS Safety Report 18188320 (Version 4)
Quarter: 2021Q4

REPORT INFORMATION
  Report Type: Spontaneous
  Country: JP (occurrence: JP)
  Receive Date: 20200824
  Receipt Date: 20211217
  Transmission Date: 20220303
  Serious: Yes (Other)
  Sender: FDA-Public Use
  Company Number: JP-GLAXOSMITHKLINE-JP2020JPN164830

PATIENT
  Age: 57 Year
  Sex: Male

DRUGS (1)
  1. MEPOLIZUMAB [Suspect]
     Active Substance: MEPOLIZUMAB
     Indication: Overlap syndrome
     Dosage: 100 MG
     Route: 058

REACTIONS (2)
  - Sinusitis aspergillus [Recovered/Resolved]
  - Disease progression [Recovered/Resolved]
